FAERS Safety Report 7920797-3 (Version None)
Quarter: 2011Q4

REPORT INFORMATION
  Report Type: 
  Country: None (occurrence: None)
  Receive Date: 20111117
  Receipt Date: 20111108
  Transmission Date: 20120403
  Serious: Yes (Hospitalization, Other)
  Sender: FDA-Public Use
  Company Number: JP-CELGENEUS-087-21660-11101013

PATIENT
  Age: 40 Year
  Sex: Female
  Weight: 47 kg

DRUGS (2)
  1. ABRAXANE [Suspect]
     Indication: BREAST CANCER METASTATIC
     Dosage: 360 MILLIGRAM
     Route: 041
     Dates: start: 20110712, end: 20110712
  2. FARESTON [Concomitant]
     Indication: BREAST CANCER METASTATIC
     Dosage: 120 MILLIGRAM
     Route: 048
     Dates: start: 20110622

REACTIONS (1)
  - INTERSTITIAL LUNG DISEASE [None]
